FAERS Safety Report 18639004 (Version 1)
Quarter: 2020Q4

REPORT INFORMATION
  Report Type: Spontaneous
  Country: KW (occurrence: KW)
  Receive Date: 20201219
  Receipt Date: 20201219
  Transmission Date: 20210114
  Serious: Yes (Other)
  Sender: FDA-Public Use
  Company Number: KW-ACCORD-211416

PATIENT
  Age: 40 Year
  Sex: Female

DRUGS (1)
  1. METHOTREXATE. [Suspect]
     Active Substance: METHOTREXATE
     Indication: ECTOPIC PREGNANCY

REACTIONS (5)
  - Leukopenia [Unknown]
  - Stomatitis [Unknown]
  - Maternal exposure during pregnancy [Unknown]
  - Cystitis [Unknown]
  - Mast cell activation syndrome [Unknown]
